FAERS Safety Report 5005786-3 (Version None)
Quarter: 2006Q2

REPORT INFORMATION
  Report Type: 
  Country: None (occurrence: None)
  Receive Date: 20060515
  Receipt Date: 20060505
  Transmission Date: 20061013
  Serious: Yes (Death, Hospitalization)
  Sender: FDA-Public Use
  Company Number: 2006PV012957

PATIENT
  Sex: Male
  Weight: 99.7913 kg

DRUGS (6)
  1. BYETTA [Suspect]
     Indication: DIABETES MELLITUS
     Dosage: 10 MCG; BID;SC; SEE IMAGE
     Route: 058
     Dates: start: 20050905, end: 20051001
  2. BYETTA [Suspect]
     Indication: DIABETES MELLITUS
     Dosage: 10 MCG; BID;SC; SEE IMAGE
     Route: 058
     Dates: start: 20051001, end: 20060301
  3. ACTOS [Concomitant]
  4. GLUCOVANCE [Concomitant]
  5. METHADONE HCL [Concomitant]
  6. ANTIBIOTIC, UNSPECIFIED [Concomitant]

REACTIONS (4)
  - ACUTE RESPIRATORY DISTRESS SYNDROME [None]
  - DIABETIC COMA [None]
  - OVERDOSE [None]
  - PNEUMONIA [None]
